FAERS Safety Report 12389825 (Version 2)
Quarter: 2016Q2

REPORT INFORMATION
  Report Type: Spontaneous
  Country: US (occurrence: US)
  Receive Date: 20160520
  Receipt Date: 20160523
  Transmission Date: 20160815
  Serious: Yes (Other)
  Sender: FDA-Public Use
  Company Number: US-BAYER-2016-094056

PATIENT
  Age: 78 Year
  Sex: Female
  Weight: 50.79 kg

DRUGS (1)
  1. CIPRO [Suspect]
     Active Substance: CIPROFLOXACIN HYDROCHLORIDE

REACTIONS (4)
  - Drug hypersensitivity [None]
  - Chest pain [None]
  - Rash [None]
  - Urticaria [None]
